FAERS Safety Report 6456070-2 (Version None)
Quarter: 2009Q4

REPORT INFORMATION
  Report Type: 
  Country: None (occurrence: None)
  Receive Date: 20091125
  Receipt Date: 20091116
  Transmission Date: 20100525
  Serious: Yes (Hospitalization, Other)
  Sender: FDA-Public Use
  Company Number: DE-JNJFOC-20091104249

PATIENT
  Age: 67 Year
  Sex: Female
  Weight: 70 kg

DRUGS (17)
  1. RISPERDAL [Suspect]
     Route: 048
     Dates: start: 20090407, end: 20090520
  2. RISPERDAL [Suspect]
     Route: 048
     Dates: start: 20090407, end: 20090520
  3. RISPERDAL [Suspect]
     Route: 048
     Dates: start: 20090407, end: 20090520
  4. RISPERDAL [Suspect]
     Route: 048
     Dates: start: 20090407, end: 20090520
  5. RISPERDAL [Suspect]
     Route: 048
     Dates: start: 20090407, end: 20090520
  6. RISPERDAL [Suspect]
     Indication: DRUG USE FOR UNKNOWN INDICATION
     Route: 048
     Dates: start: 20090407, end: 20090520
  7. VENLAFAXINE HCL [Interacting]
     Route: 048
     Dates: start: 20090423, end: 20090517
  8. VENLAFAXINE HCL [Interacting]
     Route: 048
     Dates: start: 20090423, end: 20090517
  9. VENLAFAXINE HCL [Interacting]
     Indication: DRUG USE FOR UNKNOWN INDICATION
     Route: 048
     Dates: start: 20090423, end: 20090517
  10. DELIX [Concomitant]
     Route: 048
     Dates: start: 20090331
  11. PANTOPRAZOLE [Concomitant]
     Route: 048
  12. FELODIPINE [Concomitant]
     Route: 048
  13. L-THYROXIN [Concomitant]
     Route: 048
  14. TORSEMIDE [Concomitant]
     Route: 048
     Dates: start: 20090417
  15. LORAZEPAM [Concomitant]
     Route: 048
     Dates: start: 20090320, end: 20090712
  16. LORAZEPAM [Concomitant]
     Route: 048
     Dates: start: 20090320, end: 20090712
  17. LORAZEPAM [Concomitant]
     Route: 048
     Dates: start: 20090320, end: 20090712

REACTIONS (2)
  - DRUG INTERACTION [None]
  - PARKINSONISM [None]
